FAERS Safety Report 6701516-5 (Version None)
Quarter: 2010Q2

REPORT INFORMATION
  Report Type: 
  Country: None (occurrence: None)
  Receive Date: 20100429
  Receipt Date: 20100422
  Transmission Date: 20101027
  Serious: Yes (Hospitalization)
  Sender: FDA-Public Use
  Company Number: CA-B.I. PHARMACEUTICALS,INC./RIDGEFIELD-2010-CN-00267CN

PATIENT
  Sex: Male

DRUGS (4)
  1. ATROVENT [Suspect]
     Dosage: 10 PUF
     Route: 055
     Dates: start: 20100416
  2. SPIRIVA [Suspect]
     Dosage: 1 PUF
     Route: 055
     Dates: start: 20100416
  3. PULMICORT [Concomitant]
     Dosage: 4-6 PUFFS
     Route: 055
     Dates: start: 20100416
  4. VENTOLIN [Concomitant]
     Dosage: 4-6 PUFFS
     Route: 055
     Dates: start: 20100416

REACTIONS (2)
  - LOSS OF CONSCIOUSNESS [None]
  - OVERDOSE [None]
